FAERS Safety Report 24298961 (Version 1)
Quarter: 2024Q3

REPORT INFORMATION
  Report Type: Spontaneous
  Country: US (occurrence: None)
  Receive Date: 20240907
  Receipt Date: 20240907
  Transmission Date: 20241017
  Serious: Yes (Disabling, Other)
  Sender: Public
  Company Number: None

PATIENT
  Age: 76 Year
  Sex: Male
  Weight: 67.5 kg

DRUGS (1)
  1. KEYTRUDA [Suspect]
     Active Substance: PEMBROLIZUMAB
     Indication: Bladder cancer
     Dosage: OTHER FREQUENCY : EVERY SIX WEEKS;?
     Dates: start: 20240805, end: 20240819

REACTIONS (2)
  - Pain [None]
  - Diplegia [None]

NARRATIVE: CASE EVENT DATE: 20240821
